FAERS Safety Report 23885419 (Version 1)
Quarter: 2024Q2

REPORT INFORMATION
  Report Type: Spontaneous
  Country: US (occurrence: US)
  Receive Date: 20240522
  Receipt Date: 20240522
  Transmission Date: 20240715
  Serious: No
  Sender: FDA-Public Use
  Company Number: US-BAXTER-2024BAX018380

PATIENT

DRUGS (1)
  1. TISSEEL FROZEN [Suspect]
     Active Substance: FIBRINOGEN HUMAN\THROMBIN HUMAN
     Indication: Cartilage graft
     Dosage: UNK
     Route: 065

REACTIONS (1)
  - Loose body in joint [Unknown]

NARRATIVE: CASE EVENT DATE: 20240214
